FAERS Safety Report 5001648-6 (Version None)
Quarter: 2006Q2

REPORT INFORMATION
  Report Type: 
  Country: None (occurrence: None)
  Receive Date: 20060511
  Receipt Date: 20060511
  Transmission Date: 20061013
  Serious: No
  Sender: FDA-Public Use
  Company Number: None

PATIENT
  Sex: Male

DRUGS (5)
  1. METFORMIN [Suspect]
     Indication: DIABETES MELLITUS
     Dosage: 1500 MG DAILY  PO
     Route: 048
     Dates: start: 20050209
  2. HYDROCHLOROTHIAZIDE [Concomitant]
  3. AVANDIA [Concomitant]
  4. GLYBURIDE [Concomitant]
  5. CRESTOR [Concomitant]

REACTIONS (2)
  - INADEQUATE LUBRICATION [None]
  - PHIMOSIS [None]
